FAERS Safety Report 10242195 (Version 1)
Quarter: 2014Q1

REPORT INFORMATION
  Report Type: Spontaneous
  Country: US (occurrence: None)
  Receive Date: 20140306
  Receipt Date: 20140306
  Transmission Date: 20141002
  Serious: Yes (Other)
  Sender: FDA-Public Use
  Company Number: 163-21880-13062972

PATIENT
  Age: 57 Year
  Sex: Female

DRUGS (11)
  1. REVLIMID (LENALIDOMIDE) [Suspect]
     Indication: PLASMA CELL MYELOMA
     Route: 048
     Dates: start: 201208, end: 2012
  2. HUMULIN N (INSULIN HUMAN INJECTION, ISOPHANE) [Concomitant]
  3. ZOLPIDEM TARTRATE [Concomitant]
  4. SYNTHROID (LEVOTHYROXINE SODIUM [Concomitant]
  5. METFORMIN HCL (METFORMIN HYDROCHLORIDE) [Concomitant]
  6. CARVEDILOL (CARVEDILOL) [Concomitant]
  7. CLONIDINE HCL (CLONIDINE HYDROCHLORIDE) INJECTION [Concomitant]
  8. DILTIAZEM (DILTIAZEM) [Concomitant]
  9. HYDROCODONE -ACETAMINOPHEN (VICODIN) [Concomitant]
  10. MICARD IS (TELMISARTAN) [Concomitant]
  11. DEXAMETHASONE [Concomitant]

REACTIONS (3)
  - Back disorder [None]
  - Back pain [None]
  - Local swelling [None]
